FAERS Safety Report 10312631 (Version 1)
Quarter: 2014Q3

REPORT INFORMATION
  Report Type: Spontaneous
  Country: US (occurrence: US)
  Receive Date: 20140718
  Receipt Date: 20140718
  Transmission Date: 20150326
  Serious: No
  Sender: FDA-Public Use
  Company Number: US-ASTRAZENECA-2014SE51894

PATIENT
  Age: 21385 Day
  Sex: Female
  Weight: 68 kg

DRUGS (1)
  1. NEXIUM 24HR [Suspect]
     Active Substance: ESOMEPRAZOLE MAGNESIUM
     Indication: DYSPEPSIA
     Dosage: DAILY
     Route: 048
     Dates: start: 20140707, end: 20140710

REACTIONS (3)
  - Peripheral swelling [Unknown]
  - Abdominal pain upper [Not Recovered/Not Resolved]
  - Malaise [Unknown]

NARRATIVE: CASE EVENT DATE: 20140707
